FAERS Safety Report 24369067 (Version 1)
Quarter: 2024Q3

REPORT INFORMATION
  Report Type: Spontaneous
  Country: US (occurrence: US)
  Receive Date: 20240927
  Receipt Date: 20240927
  Transmission Date: 20241017
  Serious: Yes (Life-Threatening, Hospitalization)
  Sender: BOEHRINGER INGELHEIM
  Company Number: US-BoehringerIngelheim-2024-BI-053481

PATIENT
  Age: 42 Year
  Sex: Female

DRUGS (2)
  1. EMPAGLIFLOZIN [Suspect]
     Active Substance: EMPAGLIFLOZIN
     Indication: Type 2 diabetes mellitus
  2. METFORMIN [Concomitant]
     Active Substance: METFORMIN HYDROCHLORIDE
     Indication: Product used for unknown indication

REACTIONS (7)
  - Genital abscess [Recovered/Resolved]
  - Euglycaemic diabetic ketoacidosis [Recovering/Resolving]
  - Anal abscess [Recovered/Resolved]
  - Renal tubular acidosis [Unknown]
  - Metabolic acidosis [Unknown]
  - Wound infection staphylococcal [Unknown]
  - Respiratory alkalosis [Unknown]
